FAERS Safety Report 10099969 (Version 1)
Quarter: 2014Q2

REPORT INFORMATION
  Report Type: Spontaneous
  Country: FR (occurrence: FR)
  Receive Date: 20140423
  Receipt Date: 20140423
  Transmission Date: 20141212
  Serious: Yes (Hospitalization)
  Sender: FDA-Public Use
  Company Number: FR-ELI_LILLY_AND_COMPANY-FR201404007159

PATIENT
  Age: 41 Year
  Sex: Female

DRUGS (8)
  1. ADCIRCA [Suspect]
     Indication: PRODUCT USED FOR UNKNOWN INDICATION
     Dosage: 40 MG, QD
     Route: 048
  2. ADCIRCA [Suspect]
     Dosage: 20 MG, QD
     Route: 048
  3. RITUXIMAB [Concomitant]
     Dosage: UNK
  4. CORTANCYL [Concomitant]
     Dosage: 10 MG, QD
  5. BACTRIM [Concomitant]
     Dosage: UNK, QD
  6. SPECIAFOLDINE [Concomitant]
     Dosage: 1 DF, QD
  7. ATRIPLA [Concomitant]
     Dosage: UNK, QD
  8. DIFFU K [Concomitant]
     Dosage: UNK, QD

REACTIONS (1)
  - Antisynthetase syndrome [Recovered/Resolved]
